FAERS Safety Report 6006143-3 (Version None)
Quarter: 2008Q4

REPORT INFORMATION
  Report Type: 
  Country: None (occurrence: None)
  Receive Date: 20081217
  Receipt Date: 20080617
  Transmission Date: 20090506
  Serious: No
  Sender: FDA-Public Use
  Company Number: US-BAUSCH-2008BL002701

PATIENT
  Sex: Female

DRUGS (1)
  1. ZYLET [Suspect]
     Indication: DRUG USE FOR UNKNOWN INDICATION
     Route: 047
     Dates: start: 20070101, end: 20070101

REACTIONS (1)
  - VISUAL IMPAIRMENT [None]
